FAERS Safety Report 22201382 (Version 1)
Quarter: 2023Q2

REPORT INFORMATION
  Report Type: Spontaneous
  Country: GB (occurrence: GB)
  Receive Date: 20230412
  Receipt Date: 20230412
  Transmission Date: 20230722
  Serious: Yes (Other)
  Sender: FDA-Public Use
  Company Number: GB-Accord-306501

PATIENT
  Age: 33 Year
  Sex: Female

DRUGS (7)
  1. CISPLATIN [Suspect]
     Active Substance: CISPLATIN
     Indication: Gestational trophoblastic tumour
     Dosage: ON DAY 1
  2. ETOPOSIDE [Suspect]
     Active Substance: ETOPOSIDE
     Indication: Gestational trophoblastic tumour
     Dosage: ON DAY 1
  3. METHOTREXATE [Suspect]
     Active Substance: METHOTREXATE
     Indication: Gestational trophoblastic tumour
     Dosage: HIGHER DOSE ON DAY 8
  4. DACTINOMYCIN [Suspect]
     Active Substance: DACTINOMYCIN
     Indication: Gestational trophoblastic tumour
     Dosage: ON DAY 8
  5. CISPLATIN [Suspect]
     Active Substance: CISPLATIN
     Indication: Metastases to meninges
     Dosage: ON DAY 1
  6. METHOTREXATE [Suspect]
     Active Substance: METHOTREXATE
     Indication: Metastases to meninges
     Dosage: HIGHER DOSE ON DAY 8
  7. ETOPOSIDE [Suspect]
     Active Substance: ETOPOSIDE
     Indication: Metastases to meninges
     Dosage: ON DAY 8

REACTIONS (4)
  - Infection [Unknown]
  - Off label use [Unknown]
  - Neutropenia [Unknown]
  - Mucosal inflammation [Unknown]
